FAERS Safety Report 19577996 (Version 1)
Quarter: 2021Q3

REPORT INFORMATION
  Report Type: Report from Study
  Country: US (occurrence: US)
  Receive Date: 20210719
  Receipt Date: 20210719
  Transmission Date: 20211014
  Serious: Yes (Hospitalization)
  Sender: FDA-Public Use
  Company Number: US-MYLANLABS-2021M1031809

PATIENT
  Age: 35 Year
  Sex: Male
  Weight: 104 kg

DRUGS (1)
  1. GLATIRAMER ACETATE INJECTION [Suspect]
     Active Substance: GLATIRAMER ACETATE
     Indication: RELAPSING-REMITTING MULTIPLE SCLEROSIS
     Dosage: 40 MILLIGRAM, 3XW
     Route: 058
     Dates: start: 20210521

REACTIONS (5)
  - Feeling hot [Unknown]
  - Pyrexia [Unknown]
  - Injection site mass [Not Recovered/Not Resolved]
  - Injection site pain [Recovered/Resolved]
  - Musculoskeletal stiffness [Unknown]

NARRATIVE: CASE EVENT DATE: 20210521
